FAERS Safety Report 6063145-9 (Version None)
Quarter: 2009Q1

REPORT INFORMATION
  Report Type: 
  Country: None (occurrence: None)
  Receive Date: 20090203
  Receipt Date: 20090123
  Transmission Date: 20090719
  Serious: Yes (Other)
  Sender: FDA-Public Use
  Company Number: HN-ROCHE-610298

PATIENT
  Age: 16 Year
  Sex: Female

DRUGS (2)
  1. ISOTRETINOIN [Suspect]
     Indication: DRUG USE FOR UNKNOWN INDICATION
     Dosage: STRENGTH REPORTED: 20 MG
     Route: 048
  2. ISOTRETINOIN [Suspect]
     Dosage: STRENGTH REPORTED 40 MG
     Route: 048

REACTIONS (2)
  - HAEMORRHAGE [None]
  - SYNCOPE [None]
